FAERS Safety Report 9338381 (Version 1)
Quarter: 2013Q2

REPORT INFORMATION
  Report Type: Spontaneous
  Country: US (occurrence: US)
  Receive Date: 20130610
  Receipt Date: 20130610
  Transmission Date: 20140414
  Serious: No
  Sender: FDA-Public Use
  Company Number: US-PFIZER INC-2013170569

PATIENT
  Age: 5 Year
  Sex: Male

DRUGS (1)
  1. TETRACYCLINE HCL [Suspect]
     Dosage: UNK
     Dates: start: 1962, end: 1965

REACTIONS (6)
  - Drug administered to patient of inappropriate age [Unknown]
  - Tooth fracture [Unknown]
  - Tooth loss [Unknown]
  - Tooth discolouration [Unknown]
  - Teeth brittle [Unknown]
  - Tooth disorder [Unknown]
